FAERS Safety Report 9245766 (Version 1)
Quarter: 2013Q2

REPORT INFORMATION
  Report Type: Spontaneous
  Country: US (occurrence: US)
  Receive Date: 20130422
  Receipt Date: 20130422
  Transmission Date: 20140414
  Serious: No
  Sender: FDA-Public Use
  Company Number: US-009507513-1304USA009475

PATIENT
  Age: 50 Year
  Sex: Female

DRUGS (5)
  1. SAPHRIS [Suspect]
     Indication: BIPOLAR DISORDER
     Dosage: 10 MG, QPM
     Route: 060
     Dates: start: 2011
  2. KLONOPIN [Concomitant]
     Dosage: 3 MG, BID
  3. KLONOPIN [Concomitant]
     Dosage: 1 MG, BID
  4. KLONOPIN [Concomitant]
     Dosage: 0.5 MG, BID
  5. DEPAKOTE [Concomitant]
     Dosage: 1500 MG

REACTIONS (3)
  - Tremor [Not Recovered/Not Resolved]
  - Tremor [Not Recovered/Not Resolved]
  - Tremor [Not Recovered/Not Resolved]
